FAERS Safety Report 7461508-8 (Version None)
Quarter: 2011Q2

REPORT INFORMATION
  Report Type: 
  Country: None (occurrence: None)
  Receive Date: 20110506
  Receipt Date: 20110503
  Transmission Date: 20111010
  Serious: No
  Sender: FDA-Public Use
  Company Number: US-PFIZER INC-US-WYE-H17584810

PATIENT
  Sex: Male
  Weight: 103 kg

DRUGS (11)
  1. ADVIL LIQUI-GELS [Interacting]
     Indication: MUSCLE RELAXANT THERAPY
     Dosage: 800 MG, UNK
     Route: 048
     Dates: start: 20100101
  2. ADVIL LIQUI-GELS [Interacting]
     Indication: PAIN
  3. NEURONTIN [Interacting]
     Indication: INTERVERTEBRAL DISC PROTRUSION
  4. SOMA [Interacting]
     Indication: PAIN IN EXTREMITY
     Dosage: 250 MG, UNK
     Route: 048
     Dates: start: 20100101
  5. ADVAIR DISKUS 100/50 [Concomitant]
  6. CHANTIX [Suspect]
     Indication: SMOKING CESSATION THERAPY
     Dosage: 0.5 MG, 1X/DAY
     Route: 048
     Dates: start: 20090101
  7. OXYCODONE [Concomitant]
     Dosage: UNK
  8. NEURONTIN [Interacting]
     Indication: BACK PAIN
     Dosage: 600 MG, UNK
     Route: 048
     Dates: start: 20100101
  9. HYDROCHLOROTHIAZIDE [Concomitant]
     Indication: HYPERTENSION
     Dosage: 25 MG, 1X/DAY
  10. LISINOPRIL [Concomitant]
     Indication: HYPERTENSION
     Dosage: 10 MG, 1X/DAY
  11. CHANTIX [Interacting]
     Dosage: 1 MG, 2X/DAY
     Route: 048
     Dates: start: 20100101

REACTIONS (3)
  - DIZZINESS [None]
  - DRUG INTERACTION [None]
  - DRUG INEFFECTIVE [None]
